FAERS Safety Report 13699754 (Version 3)
Quarter: 2017Q3

REPORT INFORMATION
  Report Type: Report from Study
  Country: US (occurrence: US)
  Receive Date: 20170629
  Receipt Date: 20170726
  Transmission Date: 20171127
  Serious: No
  Sender: FDA-Public Use
  Company Number: PHEH2017US019176

PATIENT
  Sex: Female

DRUGS (1)
  1. TOBRADEX [Suspect]
     Active Substance: DEXAMETHASONE\TOBRAMYCIN
     Indication: BLEPHARITIS
     Dosage: BID, BOTH EYES
     Route: 061

REACTIONS (6)
  - Periorbital oedema [Recovering/Resolving]
  - Eye oedema [Recovering/Resolving]
  - Conjunctivitis allergic [Recovered/Resolved]
  - Ocular hyperaemia [Recovering/Resolving]
  - Eye pruritus [Recovering/Resolving]
  - Conjunctival oedema [Recovering/Resolving]
